FAERS Safety Report 19321813 (Version 11)
Quarter: 2022Q3

REPORT INFORMATION
  Report Type: Report from Study
  Country: US (occurrence: US)
  Receive Date: 20210528
  Receipt Date: 20220719
  Transmission Date: 20221026
  Serious: Yes (Hospitalization)
  Sender: FDA-Public Use
  Company Number: US-BOEHRINGERINGELHEIM-2021-BI-074451

PATIENT
  Sex: Male

DRUGS (4)
  1. OFEV [Suspect]
     Active Substance: NINTEDANIB
     Indication: Idiopathic pulmonary fibrosis
     Route: 048
  2. OFEV [Suspect]
     Active Substance: NINTEDANIB
     Dosage: WITH FOOD
     Route: 048
  3. TRELEGY ELLIPTA [Suspect]
     Active Substance: FLUTICASONE FUROATE\UMECLIDINIUM BROMIDE\VILANTEROL TRIFENATATE
     Indication: Product used for unknown indication
     Route: 065
  4. HYDROCODONE [Suspect]
     Active Substance: HYDROCODONE
     Indication: Product used for unknown indication

REACTIONS (17)
  - Gallbladder disorder [Recovered/Resolved]
  - Diarrhoea [Not Recovered/Not Resolved]
  - Decreased appetite [Not Recovered/Not Resolved]
  - Fatigue [Not Recovered/Not Resolved]
  - Muscle spasms [Unknown]
  - Oxygen saturation increased [Not Recovered/Not Resolved]
  - Neck pain [Unknown]
  - Asthenia [Not Recovered/Not Resolved]
  - Anxiety [Unknown]
  - Rheumatoid arthritis [Unknown]
  - Cough [Unknown]
  - Dizziness [Unknown]
  - Glossodynia [Unknown]
  - Stomatitis [Unknown]
  - Peripheral swelling [Unknown]
  - Joint swelling [Unknown]
  - Nausea [Not Recovered/Not Resolved]
